FAERS Safety Report 7522294-6 (Version None)
Quarter: 2011Q2

REPORT INFORMATION
  Report Type: 
  Country: None (occurrence: None)
  Receive Date: 20110603
  Receipt Date: 20110519
  Transmission Date: 20111010
  Serious: Yes (Other)
  Sender: FDA-Public Use
  Company Number: FR-AMGEN-FRASP2011014924

PATIENT
  Age: 60 Year

DRUGS (4)
  1. NPLATE [Suspect]
     Indication: IDIOPATHIC THROMBOCYTOPENIC PURPURA
     Dosage: 15 A?G/KG, UNK
  2. NPLATE [Suspect]
     Dosage: 15 A?G/KG, UNK
  3. WHOLE BLOOD [Concomitant]
  4. RITUXIMAB [Concomitant]
     Dosage: UNK
     Dates: start: 20101106, end: 20101126

REACTIONS (2)
  - PLATELET COUNT DECREASED [None]
  - THROMBOCYTOSIS [None]
